FAERS Safety Report 7635667-8 (Version None)
Quarter: 2011Q3

REPORT INFORMATION
  Report Type: 
  Country: None (occurrence: None)
  Receive Date: 20110718
  Receipt Date: 20110704
  Transmission Date: 20111222
  Serious: Yes (Other)
  Sender: FDA-Public Use
  Company Number: 2011AP001386

PATIENT
  Age: 57 Year
  Sex: Male

DRUGS (4)
  1. AMLODIPINE [Concomitant]
  2. MYCOPHENOLATE MOFETIL [Suspect]
     Indication: RENAL TRANSPLANT
     Dosage: 500 MG;PO;BID
     Route: 048
     Dates: start: 20110525, end: 20110611
  3. PREDNISOLONE [Concomitant]
  4. TACROLIMUS [Concomitant]

REACTIONS (3)
  - COMPLICATIONS OF TRANSPLANTED KIDNEY [None]
  - DIARRHOEA [None]
  - RENAL FAILURE ACUTE [None]
